FAERS Safety Report 7022342-6 (Version None)
Quarter: 2010Q3

REPORT INFORMATION
  Report Type: 
  Country: None (occurrence: None)
  Receive Date: 20100930
  Receipt Date: 20100920
  Transmission Date: 20110219
  Serious: Yes (Other)
  Sender: FDA-Public Use
  Company Number: US-SANOFI-AVENTIS-2010SA057401

PATIENT
  Age: 63 Year
  Sex: Female

DRUGS (2)
  1. PLAVIX [Suspect]
     Indication: RENAL ARTERY STENOSIS
     Route: 048
     Dates: start: 20040101
  2. ASPIRIN [Suspect]
     Indication: RENAL ARTERY STENOSIS
     Route: 048
     Dates: start: 20040101

REACTIONS (6)
  - ARTERIAL OCCLUSIVE DISEASE [None]
  - CONDITION AGGRAVATED [None]
  - CONTUSION [None]
  - OFF LABEL USE [None]
  - PAIN [None]
  - RENAL ARTERY STENOSIS [None]
